FAERS Safety Report 4470004-1 (Version None)
Quarter: 2004Q3

REPORT INFORMATION
  Report Type: 
  Country: None (occurrence: None)
  Receive Date: 20040917
  Receipt Date: 20040716
  Transmission Date: 20050211
  Serious: Yes (Other)
  Sender: FDA-Public Use
  Company Number: 2004048531

PATIENT
  Age: 19 Year
  Sex: Male
  Weight: 50.3493 kg

DRUGS (10)
  1. VFEND [Suspect]
     Indication: PNEUMONIA ASPERGILLUS
     Dosage: 440 MG (1 IN 1 D), INTRAVENOUS
     Route: 042
     Dates: start: 20040712, end: 20040714
  2. TACROLIMUS (TACROLIMUS) [Suspect]
     Indication: GRAFT VERSUS HOST DISEASE
     Dosage: 12 MG (6 MG, 2 IN 1 D), ORAL
     Route: 048
  3. PRIMAXIN [Concomitant]
  4. MYCOPHENOLATE MOFETIL (MYCOPHENOLATE MOFETIL) [Concomitant]
  5. BUPROPRION HYDROCHLORIDE (BUPROPRION HYDROCHLORIDE) [Concomitant]
  6. ACYCLOVIR [Concomitant]
  7. PHENOMETHYLPENICILLIN POTASSIUM [Concomitant]
  8. METRONIDAZOLE [Concomitant]
  9. FILGRASTIM (FILGRASTIM) [Concomitant]
  10. AMLODIPINE [Concomitant]

REACTIONS (1)
  - DRUG LEVEL INCREASED [None]
